FAERS Safety Report 9262488 (Version 1)
Quarter: 2013Q2

REPORT INFORMATION
  Report Type: Spontaneous
  Country: US (occurrence: None)
  Receive Date: 20130426
  Receipt Date: 20130426
  Transmission Date: 20140414
  Serious: Yes (Life-Threatening, Other)
  Sender: FDA-Public Use
  Company Number: None

PATIENT
  Age: 68 Year
  Sex: Female

DRUGS (1)
  1. CARBATROL [Suspect]
     Indication: EPILEPSY
     Route: 048
     Dates: start: 200908, end: 200910

REACTIONS (10)
  - Rash [None]
  - Rash [None]
  - Erythema [None]
  - Hot flush [None]
  - Pain [None]
  - Muscular weakness [None]
  - Skin disorder [None]
  - Oral candidiasis [None]
  - Burns third degree [None]
  - Toxicity to various agents [None]
